FAERS Safety Report 19711217 (Version 1)
Quarter: 2021Q3

REPORT INFORMATION
  Report Type: Spontaneous
  Country: DE (occurrence: DE)
  Receive Date: 20210816
  Receipt Date: 20210816
  Transmission Date: 20211014
  Serious: Yes (Life-Threatening, Hospitalization)
  Sender: FDA-Public Use
  Company Number: DE-MYLANLABS-2021M1050672

PATIENT
  Age: 66 Year
  Sex: Male

DRUGS (13)
  1. DIGITOXIN [Concomitant]
     Active Substance: DIGITOXIN
     Dosage: 0.25 MILLIGRAM, QD (0.25 MG, 1?0?0?0)
  2. BISOPROLOL [Concomitant]
     Active Substance: BISOPROLOL
     Dosage: 2.5 MILLIGRAM, BID (2.5 MG, 1?0?1?0)
  3. RIVAROXABAN [Concomitant]
     Active Substance: RIVAROXABAN
     Dosage: 20 MILLIGRAM, QD (20 MG, 1?0?0?0)
  4. TORASEMID [Concomitant]
     Active Substance: TORSEMIDE
     Dosage: 1.25 MILLIGRAM, BID (1.25 MG, 1?0?1?0)
  5. FUROSEMIDE. [Suspect]
     Active Substance: FUROSEMIDE
     Indication: PRODUCT USED FOR UNKNOWN INDICATION
     Dosage: 40 MILLIGRAM, BID (40 MG, 1?1?0?0)
  6. ESOMEPRAZOL                        /01479301/ [Concomitant]
     Active Substance: ESOMEPRAZOLE
     Dosage: 40 MILLIGRAM, QD (40 MG, 1?0?0?0)
  7. MACROGOL [Concomitant]
     Active Substance: POLYETHYLENE GLYCOLS
     Dosage: UNK, QD (0?0?1?0)
  8. MELPERON [Concomitant]
     Active Substance: MELPERONE
     Dosage: 100 MILLIGRAM, QD (100 MG, 0?0?1?0)
  9. ATORVASTATIN [Concomitant]
     Active Substance: ATORVASTATIN
     Dosage: 80 MILLIGRAM, QD (80 MG, 0?0?1?0)
  10. FENTANYL. [Suspect]
     Active Substance: FENTANYL
     Indication: PRODUCT USED FOR UNKNOWN INDICATION
     Dosage: 0.025 MICROGRAM, Q3D (0.025 ?G, CHANGE EVERY THREE DAYS)
  11. MORPHIN                            /00036302/ [Suspect]
     Active Substance: MORPHINE SULFATE
     Indication: PRODUCT USED FOR UNKNOWN INDICATION
     Dosage: 10 MILLIGRAM (10 MG, 2?0?2?0)
  12. INSULIN DETEMIR [Concomitant]
     Active Substance: INSULIN DETEMIR
     Dosage: 1 IE, 16?0?12?0
  13. RANITIDIN [Concomitant]
     Active Substance: RANITIDINE HYDROCHLORIDE
     Dosage: 150 MILLIGRAM, BID (150 MG, 1?0?1?0)

REACTIONS (5)
  - General physical health deterioration [Unknown]
  - Dehydration [Unknown]
  - Disorientation [Unknown]
  - Constipation [Unknown]
  - Confusional state [Unknown]
